FAERS Safety Report 14094836 (Version 1)
Quarter: 2017Q4

REPORT INFORMATION
  Report Type: Report from Study
  Country: MX (occurrence: MX)
  Receive Date: 20171016
  Receipt Date: 20171016
  Transmission Date: 20180321
  Serious: Yes (Hospitalization)
  Sender: FDA-Public Use
  Company Number: MX-ELI_LILLY_AND_COMPANY-MX201708008213

PATIENT
  Age: 68 Year
  Sex: Female
  Weight: 49 kg

DRUGS (3)
  1. CETUXIMAB. [Suspect]
     Active Substance: CETUXIMAB
     Indication: COLORECTAL CANCER
     Dosage: 350 MG, WEEKLY (1/W) (20 ML/VIAL)
     Route: 042
     Dates: start: 20170725
  2. IRINOTECAN [Concomitant]
     Active Substance: IRINOTECAN
     Indication: COLORECTAL CANCER
     Dosage: 130 MG, MONTHLY (1/M)
     Route: 065
  3. CAPECITABINE. [Concomitant]
     Active Substance: CAPECITABINE
     Indication: COLORECTAL CANCER
     Dosage: 2 DF, DAILY
     Route: 065

REACTIONS (12)
  - Abdominal pain [Unknown]
  - Anaemia [Unknown]
  - Feeling cold [Unknown]
  - Hypoaesthesia [Unknown]
  - Tongue discomfort [Unknown]
  - Oral mucosal blistering [Not Recovered/Not Resolved]
  - Anorectal discomfort [Recovering/Resolving]
  - Off label use [Unknown]
  - Decreased immune responsiveness [Unknown]
  - Fatigue [Unknown]
  - Diarrhoea [Unknown]
  - Oral discomfort [Unknown]

NARRATIVE: CASE EVENT DATE: 2017
